FAERS Safety Report 5400489-5 (Version None)
Quarter: 2007Q3

REPORT INFORMATION
  Report Type: 
  Country: None (occurrence: None)
  Receive Date: 20070730
  Receipt Date: 20070717
  Transmission Date: 20080115
  Serious: Yes (Hospitalization)
  Sender: FDA-Public Use
  Company Number: DE-ABBOTT-07P-062-0374897-00

PATIENT
  Age: 66 Year
  Sex: Male

DRUGS (4)
  1. HUMIRA [Suspect]
     Indication: DRUG USE FOR UNKNOWN INDICATION
     Dates: start: 20040301, end: 20070101
  2. INFLIXIMAB [Suspect]
     Indication: DRUG USE FOR UNKNOWN INDICATION
     Dates: start: 20030201, end: 20040101
  3. METHOTREXATE [Suspect]
     Indication: DRUG USE FOR UNKNOWN INDICATION
     Dates: start: 20030101, end: 20070101
  4. METHOTREXATE [Suspect]
     Dates: start: 20070101

REACTIONS (2)
  - ANKLE ARTHROPLASTY [None]
  - PROSTHESIS IMPLANTATION [None]
